FAERS Safety Report 23178931 (Version 1)
Quarter: 2023Q4

REPORT INFORMATION
  Report Type: Spontaneous
  Country: CA (occurrence: CA)
  Receive Date: 20231113
  Receipt Date: 20231113
  Transmission Date: 20240109
  Serious: Yes (Hospitalization)
  Sender: FDA-Public Use
  Company Number: CA-PFIZER INC-202300360262

PATIENT
  Age: 10 Year
  Sex: Female
  Weight: 40 kg

DRUGS (3)
  1. CYTARABINE [Suspect]
     Active Substance: CYTARABINE
     Indication: Langerhans^ cell histiocytosis
     Dosage: 124.0 MG, ONCE
     Route: 058
  2. CYTARABINE [Suspect]
     Active Substance: CYTARABINE
     Dosage: 124.0 MG, 1 EVERY 1 DAYS
     Route: 058
  3. CYTARABINE [Suspect]
     Active Substance: CYTARABINE
     Dosage: 124.0 MG, 1 EVERY 1 DAYS
     Route: 058

REACTIONS (3)
  - Body temperature abnormal [Recovered/Resolved]
  - Pyrexia [Recovered/Resolved]
  - Off label use [Unknown]
